FAERS Safety Report 6935252-7 (Version None)
Quarter: 2010Q3

REPORT INFORMATION
  Report Type: 
  Country: None (occurrence: None)
  Receive Date: 20100822
  Receipt Date: 20100604
  Transmission Date: 20110219
  Serious: No
  Sender: FDA-Public Use
  Company Number: US-ALLERGAN-1007362US

PATIENT
  Age: 68 Year
  Sex: Female

DRUGS (4)
  1. COMBIGAN [Suspect]
     Indication: GLAUCOMA
     Dosage: 1 GTT, BID
     Dates: start: 20100520, end: 20100521
  2. COMBIGAN [Suspect]
     Dosage: 1 GTT, BID
     Dates: start: 20100401, end: 20100429
  3. LUMIGAN [Suspect]
     Indication: GLAUCOMA
     Dosage: UNK
     Dates: end: 20100429
  4. CYCLOSPORINE [Concomitant]

REACTIONS (1)
  - HYPERSENSITIVITY [None]
